FAERS Safety Report 9378622 (Version 1)
Quarter: 2013Q2

REPORT INFORMATION
  Report Type: Spontaneous
  Country: IT (occurrence: None)
  Receive Date: 20130626
  Receipt Date: 20130626
  Transmission Date: 20140414
  Serious: Yes (Hospitalization)
  Sender: FDA-Public Use
  Company Number: AUR-APL-2013-05293

PATIENT
  Age: 44 Year
  Sex: Male

DRUGS (2)
  1. CITALOPRAM (CITALOPRAM) [Suspect]
     Indication: PRODUCT USED FOR UNKNOWN INDICATION
     Dosage: 15 ML,TOTAL
     Route: 048
     Dates: start: 20130523, end: 20130523
  2. XANAX (ALPRAZOLAM) [Suspect]
     Indication: PRODUCT USED FOR UNKNOWN INDICATION
     Dosage: (2 MG,TOTAL)
     Route: 048
     Dates: start: 20130523, end: 20130523

REACTIONS (8)
  - Intentional overdose [None]
  - Headache [None]
  - Drug abuse [None]
  - Nausea [None]
  - Tremor [None]
  - Asthenia [None]
  - Toxicity to various agents [None]
  - Depression [None]
